FAERS Safety Report 7974787-5 (Version None)
Quarter: 2011Q4

REPORT INFORMATION
  Report Type: 
  Country: None (occurrence: None)
  Receive Date: 20111213
  Receipt Date: 20111208
  Transmission Date: 20120403
  Serious: Yes (Other)
  Sender: FDA-Public Use
  Company Number: PHHY2011FI107426

PATIENT
  Sex: Female

DRUGS (1)
  1. TRILEPTAL [Suspect]
     Indication: EPILEPSY
     Dosage: 150 MG, QD (IN THE EVENING)
     Route: 048
     Dates: start: 20111110, end: 20111116

REACTIONS (3)
  - ECZEMA [None]
  - CONTUSION [None]
  - SWELLING [None]
